FAERS Safety Report 4511020-0 (Version None)
Quarter: 2004Q4

REPORT INFORMATION
  Report Type: 
  Country: None (occurrence: None)
  Receive Date: 20041018
  Receipt Date: 20040813
  Transmission Date: 20050328
  Serious: No
  Sender: FDA-Public Use
  Company Number: 208494

PATIENT
  Sex: Female

DRUGS (4)
  1. XOLAIR [Suspect]
     Dosage: 300 MG, Q4W, SUBCUTANEOUS
     Route: 058
     Dates: start: 20040607
  2. ZYRTEC [Concomitant]
  3. SINGULAIR [Concomitant]
  4. PATANOL [Concomitant]

REACTIONS (2)
  - ANKLE FRACTURE [None]
  - WRIST FRACTURE [None]
